FAERS Safety Report 9537614 (Version 2)
Quarter: 2015Q2

REPORT INFORMATION
  Report Type: Spontaneous
  Country: FR (occurrence: FR)
  Receive Date: 20130919
  Receipt Date: 20150527
  Transmission Date: 20150821
  Serious: Yes (Other)
  Sender: FDA-Public Use
  Company Number: ALCN2013FR004688

PATIENT
  Age: 55 Year
  Sex: Female

DRUGS (4)
  1. EURONAC [Suspect]
     Active Substance: ACETYLCYSTEINE
     Indication: ULCERATIVE KERATITIS
     Dosage: UNK
     Route: 047
     Dates: start: 201302, end: 2013
  2. L-THYROXINE [Concomitant]
     Active Substance: LEVOTHYROXINE
     Indication: PRODUCT USED FOR UNKNOWN INDICATION
     Dosage: UNK
     Dates: start: 201110
  3. TOBREX [Suspect]
     Active Substance: TOBRAMYCIN
     Indication: ULCERATIVE KERATITIS
     Dosage: UNK
     Route: 047
     Dates: start: 201302, end: 2013
  4. CARTEOL LP [Suspect]
     Active Substance: CARTEOLOL HYDROCHLORIDE
     Indication: GLAUCOMA
     Dosage: 1 GTT, QD
     Route: 047
     Dates: start: 20100201, end: 201102

REACTIONS (3)
  - Palpitations [Recovered/Resolved]
  - Lupus-like syndrome [Recovered/Resolved]
  - Alopecia totalis [Recovering/Resolving]

NARRATIVE: CASE EVENT DATE: 201102
